FAERS Safety Report 7204280-9 (Version None)
Quarter: 2010Q4

REPORT INFORMATION
  Report Type: 
  Country: None (occurrence: None)
  Receive Date: 20101230
  Receipt Date: 20101224
  Transmission Date: 20110411
  Serious: Yes (Death, Life-Threatening)
  Sender: FDA-Public Use
  Company Number: JP-ROCHE-746186

PATIENT
  Sex: Male
  Weight: 63 kg

DRUGS (9)
  1. AVASTIN [Suspect]
     Indication: COLON CANCER METASTATIC
     Route: 041
     Dates: start: 20100527, end: 20100614
  2. ELPLAT [Concomitant]
     Route: 041
     Dates: start: 20100527, end: 20100614
  3. LEVOFOLINATE [Concomitant]
     Route: 041
     Dates: start: 20100527, end: 20100615
  4. FLUOROURACIL [Concomitant]
     Route: 041
     Dates: start: 20100527, end: 20100615
  5. VOLTAREN [Concomitant]
     Dosage: DRUG NAME; VOLTAREN(DICLOFENAC SODIUM).
     Route: 054
     Dates: start: 20100514, end: 20100624
  6. OMEPRAL [Concomitant]
     Dosage: DOSE FORM: UNCERTAINTY
     Route: 065
     Dates: start: 20100514, end: 20100624
  7. MULTAMIN [Concomitant]
     Dosage: DRUG NAME: MULTAMIN(MULTIPLE VITAMIN FOR TOTAL PARENTERAL NUTRITION)
     Route: 041
     Dates: start: 20100525
  8. DECADRON [Concomitant]
     Dosage: DOSE FORM: UNCERTAINTY
     Route: 065
     Dates: start: 20100527, end: 20100528
  9. DECADRON [Concomitant]
     Dosage: NOTE: DOSAGE DURING A DAY: 12MG/6MG/6MG/6MG
     Route: 065
     Dates: start: 20100614, end: 20100617

REACTIONS (2)
  - DISEASE PROGRESSION [None]
  - LARGE INTESTINE PERFORATION [None]
